FAERS Safety Report 20883918 (Version 1)
Quarter: 2022Q2

REPORT INFORMATION
  Report Type: Report from Study
  Country: JP (occurrence: JP)
  Receive Date: 20220527
  Receipt Date: 20220527
  Transmission Date: 20220721
  Serious: Yes (Other)
  Sender: FDA-Public Use
  Company Number: JP-SUN PHARMACEUTICAL INDUSTRIES LTD-2022R1-338304

PATIENT
  Sex: Female

DRUGS (3)
  1. DIGOXIN [Suspect]
     Active Substance: DIGOXIN
     Indication: Pulmonary hypertension
     Dosage: UNK
     Route: 065
  2. EPOPROSTENOL [Suspect]
     Active Substance: EPOPROSTENOL
     Indication: Pulmonary hypertension
     Dosage: UNK
     Route: 065
  3. NITRIC OXIDE [Suspect]
     Active Substance: NITRIC OXIDE
     Indication: Pulmonary hypertension
     Dosage: UNK
     Route: 065

REACTIONS (3)
  - Haemoptysis [Unknown]
  - Exposure during pregnancy [Unknown]
  - Premature delivery [Unknown]
